FAERS Safety Report 7900223-0 (Version None)
Quarter: 2011Q4

REPORT INFORMATION
  Report Type: 
  Country: None (occurrence: None)
  Receive Date: 20111104
  Receipt Date: 20111024
  Transmission Date: 20120403
  Serious: Yes (Other)
  Sender: FDA-Public Use
  Company Number: 2011P1009617

PATIENT
  Age: 59 Year
  Sex: Female
  Weight: 58.9676 kg

DRUGS (2)
  1. LAMOTRIGINE [Suspect]
     Indication: CONVULSION
     Dates: start: 20111006
  2. CIPROFLOXACIN [Suspect]
     Indication: CONVULSION
     Dosage: 500 MG;BID;PO
     Route: 048
     Dates: start: 20111010, end: 20111011

REACTIONS (2)
  - CONVULSION [None]
  - URINARY TRACT INFECTION [None]
